FAERS Safety Report 6997503-2 (Version None)
Quarter: 2010Q3

REPORT INFORMATION
  Report Type: 
  Country: None (occurrence: None)
  Receive Date: 20100918
  Receipt Date: 20091019
  Transmission Date: 20110219
  Serious: No
  Sender: FDA-Public Use
  Company Number: US-WYE-H11740709

PATIENT
  Sex: Female
  Weight: 90.8 kg

DRUGS (5)
  1. PRISTIQ [Suspect]
     Indication: DEPRESSION
     Route: 048
     Dates: start: 20090801, end: 20091017
  2. LISINOPRIL [Concomitant]
  3. VERAPAMIL [Concomitant]
  4. ATIVAN [Concomitant]
  5. LEVOXYL [Concomitant]

REACTIONS (1)
  - MUSCULOSKELETAL STIFFNESS [None]
